FAERS Safety Report 8819370 (Version 1)
Quarter: 2012Q4

REPORT INFORMATION
  Report Type: Spontaneous
  Country: CZ (occurrence: None)
  Receive Date: 20121003
  Receipt Date: 20121003
  Transmission Date: 20130627
  Serious: Yes (Hospitalization, Other)
  Sender: FDA-Public Use
  Company Number: DSA_59910_2012

PATIENT
  Age: 73 Year
  Sex: Female

DRUGS (3)
  1. MACUGEN [Suspect]
     Dosage: (0.3 mg, every 6 weeks)
     Dates: start: 20120816
  2. ANOPYRIN [Concomitant]
  3. HELICID /00661201/ [Concomitant]

REACTIONS (10)
  - Fall [None]
  - Joint injury [None]
  - Speech disorder [None]
  - Movement disorder [None]
  - Haemarthrosis [None]
  - Pancreatic disorder [None]
  - Cerebral infarction [None]
  - Cerebral atrophy [None]
  - Arrhythmia [None]
  - Cardiomyopathy [None]
